FAERS Safety Report 17870621 (Version 8)
Quarter: 2024Q3

REPORT INFORMATION
  Report Type: Report from Study
  Country: CA (occurrence: CA)
  Receive Date: 20200608
  Receipt Date: 20240823
  Transmission Date: 20241016
  Serious: Yes (Life-Threatening, Hospitalization)
  Sender: PFIZER
  Company Number: CA-ARRAY-2020-07881

PATIENT
  Age: 66 Year
  Sex: Male
  Weight: 62.9 kg

DRUGS (26)
  1. BINIMETINIB [Suspect]
     Active Substance: BINIMETINIB
     Indication: Colorectal cancer metastatic
     Dosage: 60 MG, FREQUENCY NOT REPORTED
     Route: 048
     Dates: start: 20200117, end: 20200318
  2. BINIMETINIB [Suspect]
     Active Substance: BINIMETINIB
     Dosage: 60 MG, FREQUENCY NOT REPORTED
     Route: 048
     Dates: start: 20200319, end: 20200406
  3. BINIMETINIB [Suspect]
     Active Substance: BINIMETINIB
     Dosage: 60 MG, FREQUENCY NOT REPORTED
     Route: 048
     Dates: start: 20200707
  4. FLUOROURACIL [Suspect]
     Active Substance: FLUOROURACIL
     Indication: Colorectal cancer metastatic
     Dosage: PRELIMINARY RECOMMENDED PHASE II DOSE (RP2D) (VOLUME OF INFUSION: 230 ML)
     Route: 042
     Dates: start: 20200117, end: 20200329
  5. FLUOROURACIL [Suspect]
     Active Substance: FLUOROURACIL
     Dosage: PRELIMINARY RECOMMENDED PHASE II DOSE (RP2D) DETERMINED IN COHORT B
     Route: 042
     Dates: start: 20200421, end: 20200423
  6. FLUOROURACIL [Suspect]
     Active Substance: FLUOROURACIL
     Dosage: PRELIMINARY RECOMMENDED PHASE II DOSE (RP2D) DETERMINED IN COHORT B (CYCLE 6)
     Route: 042
     Dates: start: 20200714
  7. LEUCOVORIN [Suspect]
     Active Substance: LEUCOVORIN\LEUCOVORIN CALCIUM
     Indication: Colorectal cancer metastatic
     Dosage: PRELIMINARY RECOMMENDED PHASE II DOSE (RP2D) (VOLUME OF INFUSION: 340 ML)
     Route: 042
     Dates: start: 20200117, end: 20200327
  8. LEUCOVORIN [Suspect]
     Active Substance: LEUCOVORIN\LEUCOVORIN CALCIUM
     Dosage: PRELIMINARY RECOMMENDED PHASE II DOSE (RP2D) DETERMINED IN COHORT B
     Route: 042
     Dates: start: 20200421, end: 20200421
  9. LEUCOVORIN [Suspect]
     Active Substance: LEUCOVORIN\LEUCOVORIN CALCIUM
     Dosage: PRELIMINARY RECOMMENDED PHASE II DOSE (RP2D) DETERMINED IN COHORT B (CYCLE 6)
     Route: 042
     Dates: start: 20200714
  10. OXALIPLATIN [Suspect]
     Active Substance: OXALIPLATIN
     Indication: Colorectal cancer metastatic
     Dosage: PRELIMINARY RECOMMENDED PHASE II DOSE (RP2D) (VOLUME OF INFUSION: 570 ML)
     Route: 042
     Dates: start: 20200117, end: 20200327
  11. OXALIPLATIN [Suspect]
     Active Substance: OXALIPLATIN
     Dosage: PRELIMINARY RECOMMENDED PHASE II DOSE (RP2D) DETERMINED IN COHORT B
     Route: 042
     Dates: start: 20200421, end: 20200421
  12. OXALIPLATIN [Suspect]
     Active Substance: OXALIPLATIN
     Dosage: PRELIMINARY RECOMMENDED PHASE II DOSE (RP2D) DETERMINED IN COHORT B (CYCLE 6)
     Route: 042
     Dates: start: 20200714
  13. PEMBROLIZUMAB [Suspect]
     Active Substance: PEMBROLIZUMAB
     Indication: Colorectal cancer metastatic
     Dosage: 200 MG, EVERY 3 WEEKS (VOLUME OF INFUSION: 100ML)
     Route: 042
     Dates: start: 20200117, end: 20200319
  14. PEMBROLIZUMAB [Suspect]
     Active Substance: PEMBROLIZUMAB
     Dosage: 200 MILLIGRAM, Q3W
     Route: 042
     Dates: start: 20200421, end: 20200421
  15. PEMBROLIZUMAB [Suspect]
     Active Substance: PEMBROLIZUMAB
     Dosage: 200 MG, EVERY 3 WEEKS (Q3W) (C6D1) CYCLE 6
     Route: 042
     Dates: start: 20200707
  16. FERROUS SULFATE [Concomitant]
     Active Substance: FERROUS SULFATE
     Dosage: 300 MG
     Dates: start: 20191227
  17. GRANISETRON [Concomitant]
     Active Substance: GRANISETRON
     Dosage: 1 MG, SOLUTION FOR INJECTION/INFUSION
     Dates: start: 20200117
  18. DEXAMETHASONE [Concomitant]
     Active Substance: DEXAMETHASONE
     Dosage: 10 MG, SOLUTION FOR INJECTION/INFUSION
     Dates: start: 20200117
  19. ACETAMINOPHEN [Concomitant]
     Active Substance: ACETAMINOPHEN
     Dosage: 650 MG
     Dates: start: 20200203
  20. CHLORHEXIDINE HYDROCHLORIDE/HYDROCORTISONE/NYSTATIN [Concomitant]
     Dosage: 20 ML, RINSE
     Dates: start: 20200207
  21. LIDOCAINE [Concomitant]
     Active Substance: LIDOCAINE
     Dosage: 1 DF
     Dates: start: 20200207
  22. NYSTATIN [Concomitant]
     Active Substance: NYSTATIN
     Dosage: 5 ML, RINSE
     Dates: start: 20200221
  23. LOMOTIL [Concomitant]
     Active Substance: ATROPINE SULFATE\DIPHENOXYLATE HYDROCHLORIDE
     Dosage: 5 MG
     Dates: start: 20200224
  24. MAGNESIUM [Concomitant]
     Active Substance: MAGNESIUM
     Dosage: 250 MG
     Dates: start: 20200326
  25. TYLENOL [Concomitant]
     Active Substance: ACETAMINOPHEN
     Dosage: 1 DF
     Dates: start: 20200408, end: 20200524
  26. CETIRIZINE HYDROCHLORIDE [Concomitant]
     Active Substance: CETIRIZINE HYDROCHLORIDE
     Dosage: 1 DF
     Dates: start: 20200408

REACTIONS (3)
  - Large intestine perforation [Recovered/Resolved]
  - Gastrointestinal anastomotic leak [Recovered/Resolved]
  - Small intestinal obstruction [Recovered/Resolved]

NARRATIVE: CASE EVENT DATE: 20200424
